FAERS Safety Report 8852219 (Version 1)
Quarter: 2012Q4

REPORT INFORMATION
  Report Type: 
  Country: US (occurrence: US)
  Receive Date: 20121022
  Receipt Date: 20121022
  Transmission Date: 20130627
  Serious: No
  Sender: FDA-Public Use
  Company Number: US-009507513-1208USA007672

PATIENT
  Age: 58 Year
  Sex: Female
  Weight: 80.27 kg

DRUGS (8)
  1. VICTRELIS [Suspect]
     Dosage: 200 mg, q6h
     Route: 048
  2. RIBAVIRIN [Suspect]
     Dosage: 200 mg, UNK
  3. PEGASYS [Suspect]
     Dosage: 180 Microgram, UNK
  4. ASPIRIN [Concomitant]
     Dosage: 81 mg, UNK
     Route: 048
  5. VITAMIN D (UNSPECIFIED) [Concomitant]
     Dosage: 5000 UNK, UNK
  6. CALCIUM (UNSPECIFIED) [Concomitant]
     Dosage: 500 mg, UNK
  7. PROCRIT [Concomitant]
     Dosage: 40000/mL, UNK
  8. VITAMINS (UNSPECIFIED) [Concomitant]

REACTIONS (5)
  - Nausea [Unknown]
  - Dizziness [Unknown]
  - Asthenia [Unknown]
  - Fatigue [Unknown]
  - Chills [Unknown]
